FAERS Safety Report 17975612 (Version 2)
Quarter: 2020Q3

REPORT INFORMATION
  Report Type: Spontaneous
  Country: JP (occurrence: JP)
  Receive Date: 20200702
  Receipt Date: 20200707
  Transmission Date: 20201103
  Serious: Yes (Other)
  Sender: FDA-Public Use
  Company Number: JP-PFIZER INC-2020252450

PATIENT
  Age: 80 Year
  Sex: Male

DRUGS (3)
  1. GASCON [Concomitant]
     Active Substance: DIMETHICONE
     Dosage: 40 MG, DAILY
     Route: 048
  2. LYRICA OD 150MG [Suspect]
     Active Substance: PREGABALIN
     Dosage: 450 MG, DAILY
     Route: 048
     Dates: start: 20130624
  3. MAGMITT [Concomitant]
     Active Substance: MAGNESIUM OXIDE
     Dosage: 330 MG, DAILY
     Route: 048

REACTIONS (5)
  - Peripheral swelling [Not Recovered/Not Resolved]
  - Motor dysfunction [Unknown]
  - Colon cancer [Unknown]
  - Interstitial lung disease [Unknown]
  - Rheumatic disorder [Unknown]

NARRATIVE: CASE EVENT DATE: 20191001
